FAERS Safety Report 9862444 (Version 2)
Quarter: 2014Q1

REPORT INFORMATION
  Report Type: Report from Study
  Country: GB (occurrence: GB)
  Receive Date: 20140203
  Receipt Date: 20140205
  Transmission Date: 20141002
  Serious: Yes (Death)
  Sender: FDA-Public Use
  Company Number: PHHY2014GB008272

PATIENT
  Age: 62 Year
  Sex: Female

DRUGS (20)
  1. DOCETAXEL [Suspect]
     Indication: BREAST CANCER
     Dosage: 160 MG EVERY 3 WEEKS
     Route: 042
     Dates: start: 20130910, end: 20131217
  2. DOCETAXEL [Suspect]
     Route: 042
     Dates: end: 20131231
  3. PERTUZUMAB [Suspect]
     Indication: BREAST CANCER
     Dosage: 840 MG, QD
     Route: 042
     Dates: start: 20130910
  4. PERTUZUMAB [Suspect]
     Dosage: 420 MG, QD
     Route: 042
     Dates: end: 20131217
  5. PERTUZUMAB [Suspect]
     Route: 042
     Dates: end: 20131231
  6. TRASTUZUMAB [Suspect]
     Indication: BREAST CANCER
     Dosage: 8 MG/KG, UNK
     Route: 042
     Dates: start: 20130910
  7. TRASTUZUMAB [Suspect]
     Dosage: 399 MG, TIW
     Route: 042
     Dates: start: 20131002, end: 20131217
  8. TRASTUZUMAB [Suspect]
     Dates: end: 20131231
  9. OXYGEN [Concomitant]
     Dosage: 2 L, UNK
     Dates: start: 20130814
  10. PREDNISOLONE [Concomitant]
     Dosage: 40 MG, UNK
     Dates: start: 20130904, end: 20131002
  11. PREDNISOLONE [Concomitant]
     Dosage: 30 MG, UNK
     Dates: start: 20131003, end: 20131017
  12. PREDNISOLONE [Concomitant]
     Dosage: 20 MG, UNK
     Dates: start: 20131017, end: 20131031
  13. AMLODIPINE [Concomitant]
     Indication: BLOOD PRESSURE
     Dosage: 5 MG, UNK
     Dates: start: 2010
  14. CALCIUM + VITAMIN D3 [Concomitant]
     Indication: BONE DISORDER
     Dosage: 1 DF, UNK
     Dates: start: 20130814
  15. PARACETAMOL [Concomitant]
     Dosage: 1 MG, UNK
     Dates: start: 20130814, end: 20130916
  16. ZOTON [Concomitant]
     Dosage: 30 MG, UNK
     Dates: start: 20131015
  17. CO-AMOXICLAV [Concomitant]
     Dosage: 500 MG, UNK
     Dates: start: 20131008, end: 20131014
  18. CHLORPHENAMINE MALEATE [Concomitant]
     Dosage: 10 MG, UNK
     Dates: start: 20130910, end: 20130910
  19. CHLORPHENAMINE MALEATE [Concomitant]
     Dosage: 10 MG, UNK
     Dates: start: 20131001, end: 20131001
  20. GAVISCON [Concomitant]

REACTIONS (1)
  - Death [Fatal]
